FAERS Safety Report 10108937 (Version 3)
Quarter: 2014Q2

REPORT INFORMATION
  Report Type: Spontaneous
  Country: US (occurrence: US)
  Receive Date: 20140425
  Receipt Date: 20140612
  Transmission Date: 20141212
  Serious: No
  Sender: FDA-Public Use
  Company Number: US-ALEXION-A201401370

PATIENT
  Sex: 0

DRUGS (3)
  1. SOLIRIS 300MG [Suspect]
     Indication: HAEMOLYTIC URAEMIC SYNDROME
     Dosage: UNK, QW
     Route: 042
     Dates: start: 20140407
  2. SOLIRIS 300MG [Suspect]
     Indication: ESCHERICHIA TEST POSITIVE
  3. SOLIRIS 300MG [Suspect]
     Indication: OFF LABEL USE

REACTIONS (3)
  - Blood creatinine increased [Recovering/Resolving]
  - Leukopenia [Recovering/Resolving]
  - Off label use [Unknown]
